FAERS Safety Report 8400022-X (Version None)
Quarter: 2012Q2

REPORT INFORMATION
  Report Type: 
  Country: None (occurrence: None)
  Receive Date: 20120531
  Receipt Date: 20120524
  Transmission Date: 20120825
  Serious: Yes (Hospitalization, Other)
  Sender: FDA-Public Use
  Company Number: CA-ROCHE-GNE320095

PATIENT
  Sex: Female

DRUGS (10)
  1. XOLAIR [Suspect]
     Dates: start: 20111031
  2. XOLAIR [Suspect]
     Dates: start: 20120425
  3. XOLAIR [Suspect]
     Route: 058
     Dates: start: 20120523
  4. ALVESCO [Concomitant]
     Indication: PRODUCT USED FOR UNKNOWN INDICATION
     Dosage: UNK
  5. ADVAIR DISKUS 100/50 [Concomitant]
     Indication: PRODUCT USED FOR UNKNOWN INDICATION
     Dosage: UNK
  6. XOLAIR [Suspect]
     Indication: ASTHMA
     Dosage: 375 MG, Q2W
     Route: 058
     Dates: start: 20110210
  7. VENTOLIN [Concomitant]
     Indication: PRODUCT USED FOR UNKNOWN INDICATION
  8. XOLAIR [Suspect]
     Dosage: 375 MG, Q2W
     Route: 058
     Dates: start: 20110601
  9. XOLAIR [Suspect]
     Dosage: 375 MG, Q2W
     Route: 058
     Dates: start: 20111003
  10. SPIRIVA [Concomitant]
     Indication: PRODUCT USED FOR UNKNOWN INDICATION
     Dosage: UNK

REACTIONS (21)
  - WHEEZING [None]
  - DIZZINESS [None]
  - FATIGUE [None]
  - NASOPHARYNGITIS [None]
  - PARAESTHESIA [None]
  - ALOPECIA [None]
  - MEMORY IMPAIRMENT [None]
  - HEADACHE [None]
  - BLADDER DISORDER [None]
  - FALL [None]
  - TREMOR [None]
  - BALANCE DISORDER [None]
  - ASTHMA [None]
  - CHEST PAIN [None]
  - STRESS [None]
  - DYSPNOEA [None]
  - ASTHENIA [None]
  - MUSCLE SPASMS [None]
  - OBSTRUCTIVE AIRWAYS DISORDER [None]
  - CHEST DISCOMFORT [None]
  - COUGH [None]
